FAERS Safety Report 6402500-1 (Version None)
Quarter: 2009Q4

REPORT INFORMATION
  Report Type: 
  Country: None (occurrence: None)
  Receive Date: 20091015
  Receipt Date: 20091007
  Transmission Date: 20100525
  Serious: Yes (Hospitalization, Other)
  Sender: FDA-Public Use
  Company Number: BR-ABBOTT-09P-020-0496064-00

PATIENT
  Sex: Female
  Weight: 73 kg

DRUGS (5)
  1. HUMIRA [Suspect]
     Indication: CROHN'S DISEASE
     Route: 058
  2. HUMIRA [Suspect]
     Route: 058
  3. CIPROFLOXACIN HYDROCHLORIDE [Concomitant]
     Indication: CROHN'S DISEASE
     Route: 048
  4. AZATHIOPRINE [Concomitant]
     Indication: CROHN'S DISEASE
     Route: 048
  5. MESALAZINE [Concomitant]
     Indication: CROHN'S DISEASE
     Route: 048

REACTIONS (10)
  - CHOLECYSTECTOMY [None]
  - DIZZINESS [None]
  - HAEMORRHAGE [None]
  - INTESTINAL OPERATION [None]
  - INTESTINAL STENOSIS [None]
  - OOPHORECTOMY [None]
  - PANCREATIC NEOPLASM [None]
  - SUTURE RUPTURE [None]
  - VOMITING [None]
  - WEIGHT DECREASED [None]
